FAERS Safety Report 23283487 (Version 1)
Quarter: 2023Q4

REPORT INFORMATION
  Report Type: Spontaneous
  Country: FR (occurrence: FR)
  Receive Date: 20231211
  Receipt Date: 20231211
  Transmission Date: 20240109
  Serious: Yes (Hospitalization, Other)
  Sender: FDA-Public Use
  Company Number: FR-MYLANLABS-2023M1129241

PATIENT
  Age: 47 Year
  Sex: Female

DRUGS (1)
  1. ARIXTRA [Suspect]
     Active Substance: FONDAPARINUX SODIUM
     Indication: Superficial vein thrombosis
     Dosage: UNK
     Route: 065
     Dates: start: 20230915

REACTIONS (1)
  - Pulmonary embolism [Unknown]
